FAERS Safety Report 16480593 (Version 24)
Quarter: 2021Q2

REPORT INFORMATION
  Report Type: Spontaneous
  Country: US (occurrence: US)
  Receive Date: 20190626
  Receipt Date: 20210415
  Transmission Date: 20210716
  Serious: Yes (Other)
  Sender: FDA-Public Use
  Company Number: US-PFIZER INC-2019260541

PATIENT
  Age: 53 Year
  Sex: Female
  Weight: 113 kg

DRUGS (25)
  1. METOPROLOL. [Concomitant]
     Active Substance: METOPROLOL
     Dosage: 100 MG, 2X/DAY
  2. LORATADINE. [Concomitant]
     Active Substance: LORATADINE
     Dosage: 10 MG, 2X/DAY
  3. ALBUTEROL HFA [Concomitant]
     Active Substance: ALBUTEROL SULFATE
     Dosage: UNK, 4X/DAY
  4. PRISTIQ EXTENDED?RELEASE [Suspect]
     Active Substance: DESVENLAFAXINE SUCCINATE
     Indication: PAIN
     Dosage: 50 MG, 1X/DAY (50MG, 1 TABLET IN THE MORNING)
     Route: 048
  5. ZETIA [Concomitant]
     Active Substance: EZETIMIBE
     Dosage: 10 MG, 1X/DAY
  6. CRESTOR [Concomitant]
     Active Substance: ROSUVASTATIN CALCIUM
     Dosage: 40 MG, 1X/DAY
  7. FORXIGA [Concomitant]
     Active Substance: DAPAGLIFLOZIN
     Dosage: 10 MG, 1X/DAY
  8. PRISTIQ EXTENDED?RELEASE [Suspect]
     Active Substance: DESVENLAFAXINE SUCCINATE
     Indication: ANXIETY
     Dosage: 150 MG, DAILY (50 MG IN THE MORNING AND 100 MG AT NIGHT)
     Route: 048
     Dates: end: 2018
  9. PRISTIQ EXTENDED?RELEASE [Suspect]
     Active Substance: DESVENLAFAXINE SUCCINATE
     Indication: MUSCLE TWITCHING
     Dosage: 50 MG, 1X/DAY (MAXIMUM DAILY DOSE: 1/D)
     Route: 048
  10. PAXIL [Concomitant]
     Active Substance: PAROXETINE HYDROCHLORIDE
     Dosage: UNK
  11. SINGULAIR [Concomitant]
     Active Substance: MONTELUKAST SODIUM
     Dosage: 10 MG, 2X/DAY
  12. BUDESONIDE. [Concomitant]
     Active Substance: BUDESONIDE
     Dosage: UNK, 2X/DAY
  13. PRISTIQ EXTENDED?RELEASE [Suspect]
     Active Substance: DESVENLAFAXINE SUCCINATE
     Indication: MUSCLE SPASMS
     Dosage: 100 MG, 1X/DAY (MAXIMUM DAILY DOSE: 1/D)
     Route: 048
  14. PRISTIQ EXTENDED?RELEASE [Suspect]
     Active Substance: DESVENLAFAXINE SUCCINATE
     Indication: SEIZURE
     Dosage: 150 MG, DAILY
     Route: 048
  15. CELEXA [CELECOXIB] [Concomitant]
     Active Substance: CELECOXIB
     Dosage: UNK
  16. HYDROCODONE [Concomitant]
     Active Substance: HYDROCODONE
     Indication: PAIN
     Dosage: UNK, AS NEEDED (10/325 MG, TWO EVERY 6 HOURS)
  17. IBUPROFEN. [Concomitant]
     Active Substance: IBUPROFEN
     Indication: PAIN
     Dosage: 800 MG, AS NEEDED (BID)
  18. PRISTIQ EXTENDED?RELEASE [Suspect]
     Active Substance: DESVENLAFAXINE SUCCINATE
     Indication: STRESS
     Dosage: 100 MG, 1X/DAY (100MG AT NIGHT)
     Route: 048
  19. EFFEXOR [Concomitant]
     Active Substance: VENLAFAXINE HYDROCHLORIDE
     Dosage: UNK
  20. FENOFIBRATE. [Concomitant]
     Active Substance: FENOFIBRATE
     Dosage: UNK, 1X/DAY (FENOFIBRATE 160)
  21. FUROSEMIDE. [Concomitant]
     Active Substance: FUROSEMIDE
     Dosage: 40 MG, 2X/DAY
  22. METFORMIN [Concomitant]
     Active Substance: METFORMIN HYDROCHLORIDE
     Dosage: 1000 MG, 2X/DAY
  23. VALIUM [Concomitant]
     Active Substance: DIAZEPAM
     Indication: MUSCLE SPASMS
     Dosage: UNK, AS NEEDED (10 MG, 2)
  24. ZOFRAN [Concomitant]
     Active Substance: ONDANSETRON HYDROCHLORIDE
     Indication: NAUSEA
     Dosage: 4 MG, AS NEEDED
  25. VALIUM [Concomitant]
     Active Substance: DIAZEPAM
     Indication: SEIZURE

REACTIONS (14)
  - Weight increased [Not Recovered/Not Resolved]
  - Product dose omission issue [Unknown]
  - Drug effective for unapproved indication [Unknown]
  - Nasopharyngitis [Unknown]
  - Dyspnoea [Recovering/Resolving]
  - Drug hypersensitivity [Unknown]
  - Off label use [Unknown]
  - Malaise [Not Recovered/Not Resolved]
  - Emotional distress [Unknown]
  - Ear discomfort [Unknown]
  - Neutrophil percentage increased [Unknown]
  - Eosinophil count increased [Unknown]
  - Eye disorder [Not Recovered/Not Resolved]
  - Pneumonia [Unknown]

NARRATIVE: CASE EVENT DATE: 2015
